FAERS Safety Report 16032142 (Version 2)
Quarter: 2019Q1

REPORT INFORMATION
  Report Type: Report from Study
  Country: None (occurrence: US)
  Receive Date: 20190304
  Receipt Date: 20190304
  Transmission Date: 20190418
  Serious: Yes (Hospitalization, Other)
  Sender: FDA-Public Use
  Company Number: US-BAUSCH-BL-2019-006938

PATIENT
  Age: 16 Year
  Sex: Female

DRUGS (1)
  1. BUPROPION. [Suspect]
     Active Substance: BUPROPION
     Indication: PRODUCT USED FOR UNKNOWN INDICATION
     Dosage: DOUBLE-DOSE INGESTION
     Route: 048

REACTIONS (4)
  - Tremor [Unknown]
  - Seizure [Recovered/Resolved]
  - Extra dose administered [Unknown]
  - Hyperreflexia [Unknown]
